FAERS Safety Report 4373072-0 (Version None)
Quarter: 2004Q2

REPORT INFORMATION
  Report Type: 
  Country: None (occurrence: None)
  Receive Date: 20040526
  Receipt Date: 20040517
  Transmission Date: 20050107
  Serious: Yes (Life-Threatening)
  Sender: FDA-Public Use
  Company Number: 2004AP02745

PATIENT
  Age: 6 Year
  Sex: Male
  Weight: 13.3 kg

DRUGS (18)
  1. MEROPEN [Suspect]
     Indication: PNEUMONIA
     Dosage: 250 MG QID IVD
     Dates: start: 20040121, end: 20040126
  2. MUCODYNE [Concomitant]
  3. CEFMETAZON [Concomitant]
  4. DORMICUM [Concomitant]
  5. SOLU-MERUCORT [Concomitant]
  6. NAFAMOSTAT [Concomitant]
  7. NEUART [Concomitant]
  8. MYSTAT AZWELL [Concomitant]
  9. GASMOTIN [Concomitant]
  10. HOKUNALIN [Concomitant]
  11. THEO-DUR [Concomitant]
  12. RIZABEN [Concomitant]
  13. PHENOBARBITAL TAB [Concomitant]
  14. MAGMIL [Concomitant]
  15. VENOGLOBULIN-IH [Concomitant]
  16. GASTER [Concomitant]
  17. NEO-MINOPHAGEN C [Concomitant]
  18. CATABON [Concomitant]

REACTIONS (3)
  - HEPATIC FUNCTION ABNORMAL [None]
  - PLATELET COUNT DECREASED [None]
  - WHITE BLOOD CELL COUNT DECREASED [None]
